FAERS Safety Report 6567155-4 (Version None)
Quarter: 2010Q1

REPORT INFORMATION
  Report Type: 
  Country: None (occurrence: None)
  Receive Date: 20100202
  Receipt Date: 20100128
  Transmission Date: 20100710
  Serious: Yes (Other)
  Sender: FDA-Public Use
  Company Number: AU-RB-001417-10

PATIENT
  Age: 99 Year
  Sex: Female

DRUGS (1)
  1. NORSPAN NOS [Suspect]
     Indication: DRUG USE FOR UNKNOWN INDICATION
     Dosage: DOSING INFORMATION UNKNOWN
     Route: 065

REACTIONS (1)
  - HALLUCINATION, VISUAL [None]
